FAERS Safety Report 9454220 (Version 1)
Quarter: 2013Q3

REPORT INFORMATION
  Report Type: Spontaneous
  Country: US (occurrence: None)
  Receive Date: 20130809
  Receipt Date: 20130809
  Transmission Date: 20140515
  Serious: Yes (Life-Threatening, Hospitalization, Disabling)
  Sender: FDA-Public Use
  Company Number: None

PATIENT
  Age: 20 Year
  Sex: Male
  Weight: 88.45 kg

DRUGS (1)
  1. LARIAM [Suspect]
     Indication: MALARIA
     Dosage: ONCE DAILY TAKEN BY MOUTH
     Route: 048
     Dates: start: 20030201, end: 20030515

REACTIONS (17)
  - Head injury [None]
  - Concussion [None]
  - Vomiting [None]
  - Swelling face [None]
  - Malaise [None]
  - Nausea [None]
  - Headache [None]
  - Nightmare [None]
  - Emotional distress [None]
  - Anxiety [None]
  - Irritability [None]
  - Insomnia [None]
  - Decreased appetite [None]
  - Retching [None]
  - Appendicitis perforated [None]
  - Dreamy state [None]
  - Paranoia [None]
